FAERS Safety Report 19091167 (Version 2)
Quarter: 2021Q2

REPORT INFORMATION
  Report Type: Spontaneous
  Country: US (occurrence: US)
  Receive Date: 20210405
  Receipt Date: 20210422
  Transmission Date: 20210717
  Serious: No
  Sender: FDA-Public Use
  Company Number: US-JNJFOC-20210403535

PATIENT
  Age: 53 Year
  Sex: Male

DRUGS (1)
  1. HALDOL DECANOATE [Suspect]
     Active Substance: HALOPERIDOL DECANOATE
     Indication: PRODUCT USED FOR UNKNOWN INDICATION
     Route: 065
     Dates: start: 199106

REACTIONS (5)
  - Product use issue [Unknown]
  - Rash [Recovering/Resolving]
  - Skin striae [Recovering/Resolving]
  - Off label use [Unknown]
  - Skin wrinkling [Recovering/Resolving]

NARRATIVE: CASE EVENT DATE: 199106
